FAERS Safety Report 5386543-5 (Version None)
Quarter: 2007Q3

REPORT INFORMATION
  Report Type: 
  Country: None (occurrence: None)
  Receive Date: 20070713
  Receipt Date: 20070712
  Transmission Date: 20080115
  Serious: Yes (Death, Hospitalization, Other)
  Sender: FDA-Public Use
  Company Number: US-PURDUE-USA_2007_0026763

PATIENT
  Age: 58 Year
  Sex: Male

DRUGS (4)
  1. OXYCONTIN [Suspect]
     Indication: CANCER PAIN
     Dosage: 80 MG, Q12H
     Dates: start: 20060303, end: 20061123
  2. DURAGESIC-100 [Concomitant]
     Indication: CANCER PAIN
     Dosage: 300 MCG/HR, UNK
     Route: 062
     Dates: start: 20060101, end: 20061123
  3. OXYIR [Concomitant]
     Indication: BREAKTHROUGH PAIN
     Dosage: UNK, PRN
     Dates: start: 20061121, end: 20061123
  4. ANTINEOPLASTIC AGENTS [Concomitant]
     Indication: NEOPLASM MALIGNANT
     Dates: start: 20060101

REACTIONS (7)
  - APHONIA [None]
  - CANCER PAIN [None]
  - DEEP VEIN THROMBOSIS [None]
  - LARYNGEAL CANCER [None]
  - MALIGNANT NEOPLASM PROGRESSION [None]
  - RENAL CANCER METASTATIC [None]
  - VOCAL CORD PARALYSIS [None]
